FAERS Safety Report 23226208 (Version 2)
Quarter: 2023Q4

REPORT INFORMATION
  Report Type: Report from Study
  Country: IN (occurrence: IN)
  Receive Date: 20231124
  Receipt Date: 20231218
  Transmission Date: 20240109
  Serious: Yes (Other)
  Sender: FDA-Public Use
  Company Number: IN-002147023-NVSC2023IN248862

PATIENT
  Sex: Female

DRUGS (2)
  1. RIBOCICLIB [Suspect]
     Active Substance: RIBOCICLIB
     Indication: Product used for unknown indication
     Dosage: 600, ONCE DAILY FOR 3 WEEKS ON AND 1 WEEK OFFONCE DAILY FOR 3 WEEKS ON AND 1 WEEK OFF
     Route: 048
  2. RIBOCICLIB [Suspect]
     Active Substance: RIBOCICLIB
     Dosage: 600 MG, QD
     Route: 048
     Dates: start: 20221207

REACTIONS (4)
  - Pneumothorax [Unknown]
  - Sclerodactylia [Unknown]
  - Pleural effusion [Unknown]
  - Osteopenia [Unknown]
